FAERS Safety Report 25679284 (Version 1)
Quarter: 2025Q3

REPORT INFORMATION
  Report Type: Spontaneous
  Country: CN (occurrence: CN)
  Receive Date: 20250814
  Receipt Date: 20250814
  Transmission Date: 20251020
  Serious: Yes (Hospitalization, Other)
  Sender: EMD SERONO INC
  Company Number: CN-Merck Healthcare KGaA-2025039967

PATIENT
  Sex: Male

DRUGS (1)
  1. EUTHYROX [Suspect]
     Active Substance: LEVOTHYROXINE SODIUM
     Indication: Product used for unknown indication

REACTIONS (11)
  - Thyroxine abnormal [Unknown]
  - Tri-iodothyronine free abnormal [Unknown]
  - Free thyroxine index abnormal [Unknown]
  - Anti-thyroid antibody increased [Unknown]
  - Tri-iodothyronine abnormal [Unknown]
  - Respiratory rate increased [Not Recovered/Not Resolved]
  - Blood thyroid stimulating hormone decreased [Unknown]
  - Pyrexia [Recovering/Resolving]
  - Heart rate increased [Not Recovered/Not Resolved]
  - Accidental exposure to product by child [Unknown]
  - Accidental overdose [Unknown]

NARRATIVE: CASE EVENT DATE: 20250801
